FAERS Safety Report 4298407-9 (Version None)
Quarter: 2004Q1

REPORT INFORMATION
  Report Type: 
  Country: None (occurrence: None)
  Receive Date: 20040218
  Receipt Date: 20030429
  Transmission Date: 20041129
  Serious: No
  Sender: FDA-Public Use
  Company Number: US-BRISTOL-MYERS SQUIBB COMPANY-12258471

PATIENT
  Age: 48 Year
  Sex: Female

DRUGS (2)
  1. STADOL [Suspect]
     Indication: MIGRAINE
     Route: 045
  2. PROTONIX [Concomitant]

REACTIONS (1)
  - DRUG INEFFECTIVE [None]
